FAERS Safety Report 6116680-9 (Version None)
Quarter: 2009Q1

REPORT INFORMATION
  Report Type: 
  Country: None (occurrence: None)
  Receive Date: 20090314
  Receipt Date: 20081204
  Transmission Date: 20090719
  Serious: No
  Sender: FDA-Public Use
  Company Number: US-ABBOTT-08P-163-0491370-00

PATIENT
  Sex: Female
  Weight: 63.56 kg

DRUGS (5)
  1. HUMIRA [Suspect]
     Indication: RHEUMATOID ARTHRITIS
     Dates: start: 20080912
  2. BACTRIM [Concomitant]
     Indication: SINUS DISORDER
  3. BACTRIM [Concomitant]
     Indication: PROPHYLAXIS
  4. ACETAMINOPHEN W/ CODEINE [Concomitant]
     Indication: ARTHRALGIA
  5. NARCOTIC [Concomitant]
     Indication: ARTHRALGIA

REACTIONS (4)
  - CROUP INFECTIOUS [None]
  - NAUSEA [None]
  - SINUSITIS [None]
  - VOMITING [None]
